FAERS Safety Report 5606807-7 (Version None)
Quarter: 2008Q1

REPORT INFORMATION
  Report Type: 
  Country: None (occurrence: None)
  Receive Date: 20080129
  Receipt Date: 20080124
  Transmission Date: 20080703
  Serious: Yes (Hospitalization, Other)
  Sender: FDA-Public Use
  Company Number: US-ASTRAZENECA-2006UW27762

PATIENT
  Sex: Female
  Weight: 90.5 kg

DRUGS (6)
  1. SEROQUEL [Suspect]
     Indication: BIPOLAR DISORDER
     Route: 048
     Dates: start: 20030210, end: 20060314
  2. ZYPREXA [Concomitant]
  3. BUSPAR [Concomitant]
  4. ABILIFY [Concomitant]
     Dates: start: 20070101, end: 20070101
  5. GEODON [Concomitant]
     Dates: start: 20070101, end: 20070101
  6. THORAZINE [Concomitant]
     Dates: start: 20060101, end: 20070101

REACTIONS (4)
  - CHEST PAIN [None]
  - DIABETES MELLITUS [None]
  - NEUROLEPTIC MALIGNANT SYNDROME [None]
  - NEUROPATHY PERIPHERAL [None]
